FAERS Safety Report 17949096 (Version 1)
Quarter: 2020Q2

REPORT INFORMATION
  Report Type: Spontaneous
  Country: US (occurrence: US)
  Receive Date: 20200625
  Receipt Date: 20200625
  Transmission Date: 20200714
  Serious: Yes (Hospitalization)
  Sender: FDA-Public Use
  Company Number: US-ROCHE-2370346

PATIENT
  Age: 73 Year
  Sex: Female

DRUGS (1)
  1. KLONOPIN [Suspect]
     Active Substance: CLONAZEPAM
     Indication: BLEPHAROSPASM
     Dosage: 0.5 MG PER DAY AND GRADUALLY INCREASED TO 3 MG DAILY IN DIVIDED DOSES
     Route: 048

REACTIONS (1)
  - Psychotic disorder [Recovered/Resolved]
